FAERS Safety Report 22645396 (Version 2)
Quarter: 2023Q2

REPORT INFORMATION
  Report Type: Spontaneous
  Country: TH (occurrence: TH)
  Receive Date: 20230627
  Receipt Date: 20230630
  Transmission Date: 20230721
  Serious: Yes (Hospitalization)
  Sender: FDA-Public Use
  Company Number: TH-002147023-NVSC2023TH142822

PATIENT
  Age: 61 Year
  Sex: Male

DRUGS (101)
  1. SACUBITRIL\VALSARTAN [Suspect]
     Active Substance: SACUBITRIL\VALSARTAN
     Indication: Product used for unknown indication
     Dosage: 0.5 MG, BID, (STRENGTH: 100 MG)
     Route: 065
     Dates: start: 202009, end: 202110
  2. SACUBITRIL\VALSARTAN [Suspect]
     Active Substance: SACUBITRIL\VALSARTAN
     Dosage: 0.25 MG, BID, (STRENGTH: 200 MG)
     Route: 065
     Dates: start: 20211117
  3. SACUBITRIL\VALSARTAN [Suspect]
     Active Substance: SACUBITRIL\VALSARTAN
     Dosage: 0.5 MG, BID, (STRENGTH: 200 MG)
     Route: 065
     Dates: start: 20211201
  4. SACUBITRIL\VALSARTAN [Suspect]
     Active Substance: SACUBITRIL\VALSARTAN
     Dosage: 1 MG, BID, (STRENGTH: 200 MG)
     Route: 065
     Dates: start: 20211215
  5. SACUBITRIL\VALSARTAN [Suspect]
     Active Substance: SACUBITRIL\VALSARTAN
     Dosage: 1 MG, BID,  (STRENGTH: 200 MG)
     Route: 065
     Dates: start: 20220105
  6. SACUBITRIL\VALSARTAN [Suspect]
     Active Substance: SACUBITRIL\VALSARTAN
     Dosage: 1 MG, BID,  (STRENGTH: 200 MG)
     Route: 065
     Dates: start: 20220119
  7. SACUBITRIL\VALSARTAN [Suspect]
     Active Substance: SACUBITRIL\VALSARTAN
     Dosage: 1 MG, BID, (STRENGTH: 200 MG)
     Route: 065
     Dates: start: 20220202
  8. SACUBITRIL\VALSARTAN [Suspect]
     Active Substance: SACUBITRIL\VALSARTAN
     Dosage: 1 MG, BID, (STRENGTH: 200 MG)
     Route: 065
     Dates: start: 20220302
  9. SACUBITRIL\VALSARTAN [Suspect]
     Active Substance: SACUBITRIL\VALSARTAN
     Dosage: 1 MG, BID, (STRENGTH: 200 MG)
     Route: 065
     Dates: start: 20220420
  10. SACUBITRIL\VALSARTAN [Suspect]
     Active Substance: SACUBITRIL\VALSARTAN
     Dosage: 1 MG, BID, (STRENGTH: 200 MG)
     Route: 065
     Dates: start: 20220518
  11. SACUBITRIL\VALSARTAN [Suspect]
     Active Substance: SACUBITRIL\VALSARTAN
     Dosage: 1 MG, BID, (STRENGTH: 200 MG)
     Route: 065
     Dates: start: 20220615
  12. SACUBITRIL\VALSARTAN [Suspect]
     Active Substance: SACUBITRIL\VALSARTAN
     Dosage: 1 MG, BID, (STRENGTH: 200 MG)
     Route: 065
     Dates: start: 20220706
  13. SACUBITRIL\VALSARTAN [Suspect]
     Active Substance: SACUBITRIL\VALSARTAN
     Dosage: 1 MG, BID, (STRENGTH: 200 MG)
     Route: 065
     Dates: start: 20221005
  14. SACUBITRIL\VALSARTAN [Suspect]
     Active Substance: SACUBITRIL\VALSARTAN
     Dosage: 1 MG, BID, (STRENGTH: 200 MG)
     Route: 065
     Dates: start: 20221116
  15. SACUBITRIL\VALSARTAN [Suspect]
     Active Substance: SACUBITRIL\VALSARTAN
     Dosage: 1 MG, BID, (STRENGTH: 200 MG)
     Route: 065
     Dates: start: 20230104
  16. SACUBITRIL\VALSARTAN [Suspect]
     Active Substance: SACUBITRIL\VALSARTAN
     Dosage: 1 MG, BID, (STRENGTH: 200 MG)
     Route: 065
     Dates: start: 20230215
  17. SACUBITRIL\VALSARTAN [Suspect]
     Active Substance: SACUBITRIL\VALSARTAN
     Dosage: 1 MG, BID, (STRENGTH: 200 MG)
     Route: 065
     Dates: start: 20230405
  18. AMIODARONE [Concomitant]
     Active Substance: AMIODARONE
     Indication: Product used for unknown indication
     Dosage: 3 DOSAGE FORM
     Route: 065
     Dates: start: 202110
  19. AMIODARONE [Concomitant]
     Active Substance: AMIODARONE
     Dosage: 1 DOSAGE FORM
     Route: 065
     Dates: start: 20211117
  20. AMIODARONE [Concomitant]
     Active Substance: AMIODARONE
     Dosage: 1 DOSAGE FORM
     Route: 065
     Dates: start: 20211201
  21. AMIODARONE [Concomitant]
     Active Substance: AMIODARONE
     Dosage: 1 DOSAGE FORM
     Route: 065
     Dates: start: 20211215
  22. AMIODARONE [Concomitant]
     Active Substance: AMIODARONE
     Dosage: 1 DOSAGE FORM
     Route: 065
     Dates: start: 20220105
  23. AMIODARONE [Concomitant]
     Active Substance: AMIODARONE
     Dosage: 0.5 DOSAGE FORM
     Route: 065
     Dates: start: 20220119
  24. AMIODARONE [Concomitant]
     Active Substance: AMIODARONE
     Dosage: 0.5 DOSAGE FORM
     Route: 065
     Dates: start: 20220202
  25. AMIODARONE [Concomitant]
     Active Substance: AMIODARONE
     Dosage: 0.5 DOSAGE FORM
     Route: 065
     Dates: start: 20230302
  26. AMIODARONE [Concomitant]
     Active Substance: AMIODARONE
     Dosage: 1 DOSAGE FORM
     Route: 065
     Dates: start: 20220420
  27. AMIODARONE [Concomitant]
     Active Substance: AMIODARONE
     Dosage: 0.5 DOSAGE FORM
     Route: 065
     Dates: start: 20220518
  28. AMIODARONE [Concomitant]
     Active Substance: AMIODARONE
     Dosage: 0.5 DOSAGE FORM
     Route: 065
     Dates: start: 20220615
  29. AMIODARONE [Concomitant]
     Active Substance: AMIODARONE
     Dosage: 0.5 DOSAGE FORM
     Route: 065
     Dates: start: 20220706
  30. AMIODARONE [Concomitant]
     Active Substance: AMIODARONE
     Dosage: 0.5 DOSAGE FORM
     Route: 065
     Dates: start: 20221005
  31. AMIODARONE [Concomitant]
     Active Substance: AMIODARONE
     Dosage: 0.5 DOSAGE FORM
     Route: 065
     Dates: start: 20221116
  32. AMIODARONE [Concomitant]
     Active Substance: AMIODARONE
     Dosage: 0.5 DOSAGE FORM
     Route: 065
     Dates: start: 20230104
  33. AMIODARONE [Concomitant]
     Active Substance: AMIODARONE
     Dosage: 0.5 DOSAGE FORM
     Route: 065
     Dates: start: 20230215
  34. AMIODARONE [Concomitant]
     Active Substance: AMIODARONE
     Dosage: 0.5 DOSAGE FORM
     Route: 065
     Dates: start: 20230405
  35. BISOPROLOL [Concomitant]
     Active Substance: BISOPROLOL
     Indication: Product used for unknown indication
     Dosage: 2.5 MG
     Route: 065
     Dates: start: 200802, end: 201212
  36. BISOPROLOL [Concomitant]
     Active Substance: BISOPROLOL
     Dosage: 1.25 MG
     Route: 065
     Dates: start: 20220119
  37. BISOPROLOL [Concomitant]
     Active Substance: BISOPROLOL
     Dosage: 2.5 MG
     Route: 065
     Dates: start: 20220202
  38. BISOPROLOL [Concomitant]
     Active Substance: BISOPROLOL
     Dosage: 2.5 MG
     Route: 065
     Dates: start: 20220302
  39. BISOPROLOL [Concomitant]
     Active Substance: BISOPROLOL
     Dosage: 2.5 MG
     Route: 065
     Dates: start: 20220420
  40. BISOPROLOL [Concomitant]
     Active Substance: BISOPROLOL
     Dosage: 2.5 MG
     Route: 065
     Dates: start: 20220518
  41. BISOPROLOL [Concomitant]
     Active Substance: BISOPROLOL
     Dosage: 2.5 MG
     Route: 065
     Dates: start: 20220615
  42. BISOPROLOL [Concomitant]
     Active Substance: BISOPROLOL
     Dosage: 2.5 MG
     Route: 065
     Dates: start: 20220706
  43. BISOPROLOL [Concomitant]
     Active Substance: BISOPROLOL
     Dosage: 2.5 MG
     Route: 065
     Dates: start: 20221005
  44. BISOPROLOL [Concomitant]
     Active Substance: BISOPROLOL
     Dosage: 2.5 MG
     Route: 065
     Dates: start: 20221116
  45. BISOPROLOL [Concomitant]
     Active Substance: BISOPROLOL
     Dosage: 2.5 MG
     Route: 065
     Dates: start: 20230104
  46. BISOPROLOL [Concomitant]
     Active Substance: BISOPROLOL
     Dosage: 2.5 MG
     Route: 065
     Dates: start: 20230215
  47. BISOPROLOL [Concomitant]
     Active Substance: BISOPROLOL
     Dosage: 2.5 MG
     Route: 065
     Dates: start: 20230405
  48. FUROSEMIDE [Concomitant]
     Active Substance: FUROSEMIDE
     Indication: Product used for unknown indication
     Dosage: 40 MG
     Route: 065
     Dates: start: 200802, end: 201212
  49. FUROSEMIDE [Concomitant]
     Active Substance: FUROSEMIDE
     Dosage: 80 MG
     Route: 065
     Dates: start: 202110
  50. FUROSEMIDE [Concomitant]
     Active Substance: FUROSEMIDE
     Dosage: 80 MG
     Route: 065
     Dates: start: 20211117
  51. FUROSEMIDE [Concomitant]
     Active Substance: FUROSEMIDE
     Dosage: 80 MG
     Route: 065
     Dates: start: 20211201
  52. FUROSEMIDE [Concomitant]
     Active Substance: FUROSEMIDE
     Dosage: 80 MG
     Route: 065
     Dates: start: 20211215
  53. FUROSEMIDE [Concomitant]
     Active Substance: FUROSEMIDE
     Dosage: 80 MG
     Route: 065
     Dates: start: 20220105
  54. FUROSEMIDE [Concomitant]
     Active Substance: FUROSEMIDE
     Dosage: 80 MG
     Route: 065
     Dates: start: 20220119
  55. FUROSEMIDE [Concomitant]
     Active Substance: FUROSEMIDE
     Dosage: 80 MG
     Route: 065
     Dates: start: 20220202
  56. FUROSEMIDE [Concomitant]
     Active Substance: FUROSEMIDE
     Dosage: 80 MG
     Route: 065
     Dates: start: 20220302
  57. FUROSEMIDE [Concomitant]
     Active Substance: FUROSEMIDE
     Dosage: 80 MG
     Route: 065
     Dates: start: 20220420
  58. FUROSEMIDE [Concomitant]
     Active Substance: FUROSEMIDE
     Dosage: 80 MG
     Route: 065
     Dates: start: 20220518
  59. FUROSEMIDE [Concomitant]
     Active Substance: FUROSEMIDE
     Dosage: 80 MG
     Route: 065
     Dates: start: 20220615
  60. FUROSEMIDE [Concomitant]
     Active Substance: FUROSEMIDE
     Dosage: 80 MG
     Route: 065
     Dates: start: 20220706
  61. FUROSEMIDE [Concomitant]
     Active Substance: FUROSEMIDE
     Dosage: 80 MG
     Route: 065
     Dates: start: 20221005
  62. FUROSEMIDE [Concomitant]
     Active Substance: FUROSEMIDE
     Dosage: 20 MG
     Route: 065
     Dates: start: 20221116
  63. FUROSEMIDE [Concomitant]
     Active Substance: FUROSEMIDE
     Dosage: 20 MG
     Route: 065
     Dates: start: 20230104
  64. FUROSEMIDE [Concomitant]
     Active Substance: FUROSEMIDE
     Dosage: 20 MG, (AD)
     Route: 065
     Dates: start: 20230215
  65. FUROSEMIDE [Concomitant]
     Active Substance: FUROSEMIDE
     Dosage: 40 MG
     Route: 065
     Dates: start: 20230405
  66. SPIRONOLACTONE [Concomitant]
     Active Substance: SPIRONOLACTONE
     Indication: Product used for unknown indication
     Dosage: 1 DOSAGE FORM, (PC)
     Route: 048
  67. DIGOXIN [Concomitant]
     Active Substance: DIGOXIN
     Indication: Product used for unknown indication
     Dosage: 0.25 MG, QD
     Route: 065
     Dates: start: 200802
  68. DIGOXIN [Concomitant]
     Active Substance: DIGOXIN
     Dosage: 0.25 MG, QD
     Route: 065
     Dates: start: 201212
  69. DIGOXIN [Concomitant]
     Active Substance: DIGOXIN
     Dosage: 0.25 MG, QD
     Route: 065
     Dates: start: 201502, end: 202009
  70. DIGOXIN [Concomitant]
     Active Substance: DIGOXIN
     Dosage: 0.5 DOSAGE FORM
     Route: 065
     Dates: start: 20211117
  71. DIGOXIN [Concomitant]
     Active Substance: DIGOXIN
     Dosage: 0.5 DOSAGE FORM
     Route: 065
     Dates: start: 20211201
  72. DIGOXIN [Concomitant]
     Active Substance: DIGOXIN
     Dosage: 0.5 DOSAGE FORM
     Route: 065
     Dates: start: 20211215
  73. DIGOXIN [Concomitant]
     Active Substance: DIGOXIN
     Dosage: 0.5 DOSAGE FORM
     Route: 065
     Dates: start: 20220105
  74. DIGOXIN [Concomitant]
     Active Substance: DIGOXIN
     Dosage: 0.5 DOSAGE FORM
     Route: 065
     Dates: start: 20220119
  75. DIGOXIN [Concomitant]
     Active Substance: DIGOXIN
     Dosage: 0.5 DOSAGE FORM
     Route: 065
     Dates: start: 20220202
  76. DIGOXIN [Concomitant]
     Active Substance: DIGOXIN
     Dosage: 0.5 DOSAGE FORM
     Route: 065
     Dates: start: 20220302
  77. DIGOXIN [Concomitant]
     Active Substance: DIGOXIN
     Dosage: 0.5 DOSAGE FORM
     Route: 065
     Dates: start: 20220302, end: 20220420
  78. DIGOXIN [Concomitant]
     Active Substance: DIGOXIN
     Dosage: 0.5 DOSAGE FORM
     Route: 065
     Dates: start: 20220518
  79. DIGOXIN [Concomitant]
     Active Substance: DIGOXIN
     Dosage: 0.5 DOSAGE FORM
     Route: 065
     Dates: start: 20220615
  80. DIGOXIN [Concomitant]
     Active Substance: DIGOXIN
     Dosage: 0.5 DOSAGE FORM
     Route: 065
     Dates: start: 20220706
  81. DIGOXIN [Concomitant]
     Active Substance: DIGOXIN
     Dosage: 0.5 DOSAGE FORM
     Route: 065
     Dates: start: 20221005
  82. DIGOXIN [Concomitant]
     Active Substance: DIGOXIN
     Dosage: 0.5 DOSAGE FORM
     Route: 065
     Dates: start: 20221116
  83. DIGOXIN [Concomitant]
     Active Substance: DIGOXIN
     Dosage: 0.5 DOSAGE FORM
     Route: 065
     Dates: start: 20230104
  84. DIGOXIN [Concomitant]
     Active Substance: DIGOXIN
     Dosage: 0.5 DOSAGE FORM
     Route: 065
     Dates: start: 20230215
  85. DIGOXIN [Concomitant]
     Active Substance: DIGOXIN
     Dosage: 0.5 DOSAGE FORM
     Route: 065
     Dates: start: 20230405
  86. IVABRADINE [Concomitant]
     Active Substance: IVABRADINE
     Indication: Product used for unknown indication
     Dosage: 2 DOSAGE FORM, (STRENGTH: 5 MG)
     Route: 065
     Dates: start: 202009
  87. IVABRADINE [Concomitant]
     Active Substance: IVABRADINE
     Dosage: 2 DOSAGE FORM, (STRENGTH: 7.5 MG)
     Route: 065
     Dates: start: 202110, end: 20221117
  88. HYDROCHLOROTHIAZIDE [Concomitant]
     Active Substance: HYDROCHLOROTHIAZIDE
     Indication: Product used for unknown indication
     Dosage: 2 DOSAGE FORM
     Route: 065
     Dates: start: 20220105
  89. HYDROCHLOROTHIAZIDE [Concomitant]
     Active Substance: HYDROCHLOROTHIAZIDE
     Dosage: 2 DOSAGE FORM, PRN
     Route: 065
     Dates: start: 20220119
  90. HYDROCHLOROTHIAZIDE [Concomitant]
     Active Substance: HYDROCHLOROTHIAZIDE
     Dosage: 2 DOSAGE FORM
     Route: 065
     Dates: start: 20220202
  91. HYDROCHLOROTHIAZIDE [Concomitant]
     Active Substance: HYDROCHLOROTHIAZIDE
     Dosage: 2 DOSAGE FORM, PRN
     Route: 065
     Dates: start: 20220302
  92. HYDROCHLOROTHIAZIDE [Concomitant]
     Active Substance: HYDROCHLOROTHIAZIDE
     Dosage: 2 DOSAGE FORM
     Route: 065
     Dates: start: 20220420
  93. HYDROCHLOROTHIAZIDE [Concomitant]
     Active Substance: HYDROCHLOROTHIAZIDE
     Dosage: 2 DOSAGE FORM, PRN
     Route: 065
     Dates: start: 20220518
  94. HYDROCHLOROTHIAZIDE [Concomitant]
     Active Substance: HYDROCHLOROTHIAZIDE
     Dosage: 2 DOSAGE FORM, PRN
     Route: 065
     Dates: start: 20220615
  95. HYDROCHLOROTHIAZIDE [Concomitant]
     Active Substance: HYDROCHLOROTHIAZIDE
     Dosage: 2 DOSAGE FORM, PRN
     Route: 065
     Dates: start: 20220706
  96. HYDROCHLOROTHIAZIDE [Concomitant]
     Active Substance: HYDROCHLOROTHIAZIDE
     Dosage: 2 DOSAGE FORM, PRN
     Route: 065
     Dates: start: 20221005
  97. DAPAGLIFLOZIN [Concomitant]
     Active Substance: DAPAGLIFLOZIN
     Indication: Product used for unknown indication
     Dosage: 0.5 DOSAGE FORM
     Route: 065
     Dates: start: 20221005
  98. DAPAGLIFLOZIN [Concomitant]
     Active Substance: DAPAGLIFLOZIN
     Dosage: 0.5 DOSAGE FORM
     Route: 065
     Dates: start: 20221106
  99. DAPAGLIFLOZIN [Concomitant]
     Active Substance: DAPAGLIFLOZIN
     Dosage: 0.5 DOSAGE FORM
     Route: 065
     Dates: start: 20230104
  100. DAPAGLIFLOZIN [Concomitant]
     Active Substance: DAPAGLIFLOZIN
     Dosage: 0.5 DOSAGE FORM
     Route: 065
     Dates: start: 20230215
  101. DAPAGLIFLOZIN [Concomitant]
     Active Substance: DAPAGLIFLOZIN
     Dosage: 0.5 DOSAGE FORM
     Route: 065
     Dates: start: 20230405

REACTIONS (8)
  - Cardiac failure [Unknown]
  - Hepatic failure [Unknown]
  - Ventricular tachycardia [Unknown]
  - Renal failure [Unknown]
  - Gynaecomastia [Unknown]
  - Blood pressure decreased [Unknown]
  - Blood potassium decreased [Recovering/Resolving]
  - Wrong technique in product usage process [Unknown]

NARRATIVE: CASE EVENT DATE: 20211001
